FAERS Safety Report 9464209 (Version 1)
Quarter: 2013Q3

REPORT INFORMATION
  Report Type: Spontaneous
  Country: AU (occurrence: AU)
  Receive Date: 20130819
  Receipt Date: 20130819
  Transmission Date: 20140515
  Serious: Yes (Other)
  Sender: FDA-Public Use
  Company Number: AU-ROCHE-1263807

PATIENT
  Sex: 0

DRUGS (10)
  1. CEFTRIAXONE [Suspect]
     Indication: PRODUCT USED FOR UNKNOWN INDICATION
     Dosage: 1 TIME
     Route: 042
     Dates: start: 20130518, end: 20130518
  2. DARBEPOETIN ALFA [Concomitant]
     Route: 065
  3. ATENOLOL [Concomitant]
     Route: 065
  4. CHOLECALCIFEROL [Concomitant]
     Route: 065
  5. LERCANIDIPINE HYDROCHLORIDE [Concomitant]
     Route: 065
  6. MYCOPHENOLATE MOFETIL [Concomitant]
     Route: 065
  7. PRAVASTATIN SODIUM [Concomitant]
     Route: 065
  8. PRAZOSIN HYDROCHLORIDE [Concomitant]
     Route: 065
  9. PREDNISOLONE [Concomitant]
     Route: 065
  10. TACROLIMUS [Concomitant]
     Route: 065

REACTIONS (2)
  - Dyspnoea [Recovered/Resolved]
  - Eye swelling [Recovered/Resolved]
